FAERS Safety Report 5761924-6 (Version None)
Quarter: 2008Q2

REPORT INFORMATION
  Report Type: 
  Country: None (occurrence: None)
  Receive Date: 20080603
  Receipt Date: 20080525
  Transmission Date: 20081010
  Serious: Yes (Other)
  Sender: FDA-Public Use
  Company Number: 2008SP010303

PATIENT
  Age: 45 Year
  Sex: Male

DRUGS (2)
  1. CLARITIN [Suspect]
     Indication: SEASONAL ALLERGY
     Dosage: 10 MG; UNK;
     Dates: start: 20080525
  2. BENADRYL [Suspect]
     Dosage: ;UNK;PO
     Route: 048
     Dates: start: 20080525

REACTIONS (2)
  - CHOKING SENSATION [None]
  - PRESYNCOPE [None]
